FAERS Safety Report 20460602 (Version 1)
Quarter: 2022Q1

REPORT INFORMATION
  Report Type: Spontaneous
  Country: US (occurrence: US)
  Receive Date: 20220211
  Receipt Date: 20220211
  Transmission Date: 20220423
  Serious: No
  Sender: FDA-Public Use
  Company Number: US-ENDO PHARMACEUTICALS INC-2021-002646

PATIENT
  Age: 70 Year
  Sex: Male
  Weight: 87.075 kg

DRUGS (11)
  1. TESTOSTERONE [Suspect]
     Active Substance: TESTOSTERONE
     Indication: Blood testosterone decreased
     Dosage: 2 PUMPS, UNKNOWN
     Route: 061
  2. TESTOSTERONE [Suspect]
     Active Substance: TESTOSTERONE
     Dosage: 3 PUMPS, UNKNOWN
     Route: 061
     Dates: start: 202012
  3. TESTOSTERONE [Suspect]
     Active Substance: TESTOSTERONE
     Dosage: 7 DF, UNKNOWN
     Route: 061
     Dates: start: 20210421
  4. TADALAFIL [Concomitant]
     Active Substance: TADALAFIL
     Indication: Benign prostatic hyperplasia
     Dosage: 10 MG, DAILY
     Route: 065
  5. ROSUVASTATIN CALCIUM [Concomitant]
     Active Substance: ROSUVASTATIN CALCIUM
     Indication: Blood cholesterol increased
     Dosage: 10 MG, DAILY
     Route: 065
  6. ROPINIROLE HYDROCHLORIDE [Concomitant]
     Active Substance: ROPINIROLE HYDROCHLORIDE
     Indication: Restless legs syndrome
     Dosage: 0.5 MG, DAILY, AT NIGHT
     Route: 065
  7. BENAZEPRIL [Concomitant]
     Active Substance: BENAZEPRIL HYDROCHLORIDE
     Indication: Hypertension
     Dosage: 5 MG, DAILY
     Route: 065
  8. VITAMIN D3 [Concomitant]
     Active Substance: CHOLECALCIFEROL
     Indication: Vitamin D decreased
     Dosage: UNK UNKNOWN, UNKNOWN
     Route: 065
  9. VITAMIN B12 [Concomitant]
     Active Substance: CYANOCOBALAMIN
     Indication: Vitamin supplementation
     Dosage: UNK UNKNOWN, UNKNOWN
     Route: 065
  10. MAGNESIUM GLYCINATE [Concomitant]
     Active Substance: MAGNESIUM GLYCINATE
     Indication: Supplementation therapy
     Dosage: UNK UNKNOWN, UNKNOWN
     Route: 065
  11. ASPIRIN [Concomitant]
     Active Substance: ASPIRIN
     Indication: Prophylaxis
     Dosage: 81 MG, DAILY
     Route: 065

REACTIONS (4)
  - Blood testosterone decreased [Unknown]
  - Product administered at inappropriate site [Unknown]
  - Incorrect dose administered [Unknown]
  - Product container issue [Unknown]

NARRATIVE: CASE EVENT DATE: 20201201
